FAERS Safety Report 19544108 (Version 1)
Quarter: 2021Q3

REPORT INFORMATION
  Report Type: Spontaneous
  Country: ES (occurrence: ES)
  Receive Date: 20210714
  Receipt Date: 20210714
  Transmission Date: 20211014
  Serious: Yes (Disabling, Other)
  Sender: FDA-Public Use
  Company Number: ES-NOVEN PHARMACEUTICALS, INC.-2021-NOV-ES003534

PATIENT
  Age: 44 Year
  Sex: Female

DRUGS (8)
  1. LIDOCAINE. [Suspect]
     Active Substance: LIDOCAINE
     Indication: LOCAL ANAESTHESIA
     Dosage: 0.05 %, UNK
  2. EPINEPHRINE. [Suspect]
     Active Substance: EPINEPHRINE
     Indication: LIPOSUCTION
  3. LIDOCAINE. [Suspect]
     Active Substance: LIDOCAINE
     Indication: LIPOSUCTION
  4. EPINEPHRINE. [Suspect]
     Active Substance: EPINEPHRINE
     Indication: MAMMOPLASTY
  5. LIDOCAINE. [Suspect]
     Active Substance: LIDOCAINE
     Indication: MAMMOPLASTY
  6. LIDOCAINE. [Suspect]
     Active Substance: LIDOCAINE
     Indication: ABDOMINOPLASTY
  7. EPINEPHRINE. [Suspect]
     Active Substance: EPINEPHRINE
     Indication: LOCAL ANAESTHESIA
     Dosage: 1: 100,000, UNK
  8. EPINEPHRINE. [Suspect]
     Active Substance: EPINEPHRINE
     Indication: ABDOMINOPLASTY

REACTIONS (1)
  - Axillary nerve injury [Recovered/Resolved]
